FAERS Safety Report 4367707-6 (Version None)
Quarter: 2004Q2

REPORT INFORMATION
  Report Type: 
  Country: None (occurrence: None)
  Receive Date: 20040526
  Receipt Date: 20040312
  Transmission Date: 20050107
  Serious: Yes (Hospitalization)
  Sender: FDA-Public Use
  Company Number: USA031051068

PATIENT
  Age: 34 Year
  Sex: Male

DRUGS (4)
  1. ZYPREXA [Suspect]
     Indication: CONVULSION
     Dosage: 10 MG/IN THE MORNING
     Dates: start: 20031025, end: 20040201
  2. ZYPREXA [Suspect]
     Indication: DEPRESSION
     Dosage: 10 MG/IN THE MORNING
     Dates: start: 20031025, end: 20040201
  3. ZYPREXA [Suspect]
     Indication: MOOD SWINGS
     Dosage: 10 MG/IN THE MORNING
     Dates: start: 20031025, end: 20040201
  4. DEPAKOTE [Concomitant]

REACTIONS (11)
  - ARTHRALGIA [None]
  - ASTHENIA [None]
  - BACK PAIN [None]
  - CHEST PAIN [None]
  - COMA [None]
  - DIABETES MELLITUS [None]
  - DRUG INEFFECTIVE [None]
  - FEELING ABNORMAL [None]
  - HEADACHE [None]
  - HYPERGLYCAEMIA [None]
  - NERVOUSNESS [None]
